FAERS Safety Report 6136318-4 (Version None)
Quarter: 2009Q1

REPORT INFORMATION
  Report Type: 
  Country: None (occurrence: None)
  Receive Date: 20090330
  Receipt Date: 20090316
  Transmission Date: 20090719
  Serious: Yes (Hospitalization)
  Sender: FDA-Public Use
  Company Number: DE-ASTRAZENECA-2009PK00879

PATIENT
  Age: 43 Year
  Sex: Female
  Weight: 36.6 kg

DRUGS (8)
  1. NEXIUM [Suspect]
     Indication: PROPHYLAXIS AGAINST GASTROINTESTINAL ULCER
     Route: 048
     Dates: start: 20081107, end: 20081114
  2. DIFLUCAN [Suspect]
     Indication: OESOPHAGEAL CANDIDIASIS
     Route: 048
     Dates: start: 20081107, end: 20081114
  3. ZYPREXA [Suspect]
     Indication: DEPRESSION
     Route: 048
     Dates: start: 20070101, end: 20081120
  4. ANAFRANIL [Concomitant]
     Indication: DEPRESSION
     Route: 048
     Dates: end: 20081118
  5. REMERGIL [Concomitant]
     Indication: DEPRESSION
     Route: 048
     Dates: start: 20040101
  6. LEVOTHYROXINE SODIUM [Concomitant]
     Indication: HYPOTHYROIDISM
     Route: 048
     Dates: start: 20020101
  7. PENHEXAL [Concomitant]
     Indication: ERYSIPELAS
     Route: 048
     Dates: start: 20081113, end: 20081123
  8. IBUPROFEN [Concomitant]
     Indication: PAIN
     Route: 048
     Dates: start: 20081113, end: 20081116

REACTIONS (1)
  - LIVER FUNCTION TEST ABNORMAL [None]
